FAERS Safety Report 9917745 (Version 2)
Quarter: 2020Q3

REPORT INFORMATION
  Report Type: Report from Study
  Country: TH (occurrence: TH)
  Receive Date: 20140221
  Receipt Date: 20140424
  Transmission Date: 20201104
  Serious: Yes (Death, Hospitalization)
  Sender: FDA-Public Use
  Company Number: PHHY2014TH019851

PATIENT
  Age: 56 Year
  Sex: Male

DRUGS (26)
  1. OXALIPLATIN. [Suspect]
     Active Substance: OXALIPLATIN
     Dosage: 137 UNK, UNK
     Route: 042
     Dates: start: 20130822
  2. ONARTUZUMAB. [Suspect]
     Active Substance: ONARTUZUMAB
     Indication: GASTROOESOPHAGEAL CANCER
     Dosage: UNK UKN, UNK
     Route: 042
     Dates: start: 20130520
  3. DEXTROMETHORPHAN [Concomitant]
     Active Substance: DEXTROMETHORPHAN
     Indication: COUGH
     Dosage: 15 MG, UNK
     Route: 048
     Dates: start: 20131002
  4. HYOSCIN [Concomitant]
     Indication: ABDOMINAL PAIN
     Dosage: 20 MG, DAILY
     Route: 042
     Dates: start: 20130824, end: 20130824
  5. OXALIPLATIN. [Suspect]
     Active Substance: OXALIPLATIN
     Dosage: 137 MG, 1 IN 2 WEEK
     Route: 042
     Dates: start: 20131002
  6. 5?FLUOROURACIL [Suspect]
     Active Substance: FLUOROURACIL
     Dosage: 583 MG, 1 IN 2 WEEKS
     Route: 042
     Dates: start: 20130520
  7. CALCIUM LEVOFOLINATE [Suspect]
     Active Substance: LEVOLEUCOVORIN CALCIUM
     Indication: GASTROOESOPHAGEAL CANCER
     Dosage: 583 MG, DAILY
     Route: 042
     Dates: start: 20130520
  8. CALCIUM LEVOFOLINATE [Suspect]
     Active Substance: LEVOLEUCOVORIN CALCIUM
     Dosage: 583 MG 1 IN 2 WEEK
     Route: 042
     Dates: start: 20131002
  9. ONARTUZUMAB. [Suspect]
     Active Substance: ONARTUZUMAB
     Dosage: UNK UKN, UNK
     Route: 042
     Dates: start: 20130822
  10. METOCLOPRAMIDE. [Concomitant]
     Active Substance: METOCLOPRAMIDE
     Indication: PROPHYLAXIS
     Dosage: 1 DF, UNK
     Route: 048
     Dates: start: 20130520, end: 20131002
  11. METOCLOPRAMIDE. [Concomitant]
     Active Substance: METOCLOPRAMIDE
     Dosage: 10 MG, UNK
     Route: 042
     Dates: start: 20130520
  12. ALDACTONE [Concomitant]
     Active Substance: SPIRONOLACTONE
     Indication: ASCITES
     Dosage: 4 DF, DAILY
     Route: 048
     Dates: start: 20130822, end: 20131002
  13. 5?FLUOROURACIL [Suspect]
     Active Substance: FLUOROURACIL
     Indication: PROPHYLAXIS
     Dosage: 583 MG, DAILY
     Route: 040
     Dates: start: 20130520
  14. SIMETHICONE (DIMETHICONE) [Concomitant]
     Active Substance: DIMETHICONE
     Indication: ABDOMINAL PAIN
     Dosage: 1 DF, UNK
     Route: 048
     Dates: start: 20130824, end: 20131003
  15. 5?FLUOROURACIL [Suspect]
     Active Substance: FLUOROURACIL
     Dosage: 3500 MG, 1 IN 2 WEEK
     Route: 042
     Dates: start: 20131002
  16. CALCIUM LEVOFOLINATE [Suspect]
     Active Substance: LEVOLEUCOVORIN CALCIUM
     Dosage: 583 MG, 1 IN 2 WEEKS
     Route: 042
     Dates: start: 20130822
  17. ONARTUZUMAB. [Suspect]
     Active Substance: ONARTUZUMAB
     Dosage: 1 DF, IN 2 WEEKS
     Route: 042
     Dates: start: 20131002
  18. ONDANSETRON [Concomitant]
     Active Substance: ONDANSETRON
     Indication: PROPHYLAXIS
     Dosage: 1 DF, UNK
     Route: 042
     Dates: start: 20130520
  19. 5?FLUOROURACIL [Suspect]
     Active Substance: FLUOROURACIL
     Dosage: 583 MG, UNK
     Route: 040
     Dates: start: 20130822
  20. 5?FLUOROURACIL [Suspect]
     Active Substance: FLUOROURACIL
     Dosage: 3500 MG, UNK
     Route: 042
     Dates: start: 20130822
  21. DEXAMETHASONE. [Concomitant]
     Active Substance: DEXAMETHASONE
     Indication: PROPHYLAXIS
     Dosage: 8 MG, UNK
     Route: 042
     Dates: start: 20130520, end: 20131002
  22. ALBUMIN [Concomitant]
     Active Substance: ALBUMIN HUMAN
     Indication: ASCITES
     Dosage: 100 ML, UNK
     Route: 042
     Dates: start: 20130925, end: 20130925
  23. LORAZEPAM. [Concomitant]
     Active Substance: LORAZEPAM
     Indication: PROPHYLAXIS
     Dosage: 1 DF, UNK
     Route: 048
     Dates: start: 20130620, end: 20131002
  24. OXALIPLATIN. [Suspect]
     Active Substance: OXALIPLATIN
     Indication: GASTROOESOPHAGEAL CANCER
     Dosage: 137 MG, IN 2 WEEKS
     Route: 042
     Dates: start: 20130520
  25. 5?FLUOROURACIL [Suspect]
     Active Substance: FLUOROURACIL
     Dosage: 583 MG, 1 IN 2 WEEK
     Route: 040
     Dates: start: 20131002
  26. BROMHEXINE [Concomitant]
     Active Substance: BROMHEXINE
     Indication: COUGH
     Dosage: UNK UKN, UNK
     Dates: start: 20131004, end: 20131004

REACTIONS (5)
  - Fatigue [Not Recovered/Not Resolved]
  - Leukocytosis [Recovered/Resolved]
  - Pyrexia [Recovered/Resolved]
  - Death [Fatal]
  - Peritonitis [Recovered/Resolved]

NARRATIVE: CASE EVENT DATE: 20130824
